FAERS Safety Report 9068600 (Version 1)
Quarter: 2013Q1

REPORT INFORMATION
  Report Type: Spontaneous
  Country: US (occurrence: None)
  Receive Date: 20130212
  Receipt Date: 20130212
  Transmission Date: 20140127
  Serious: Yes (Other)
  Sender: FDA-Public Use
  Company Number: None

PATIENT
  Age: 75 Year
  Sex: Male
  Weight: 74.84 kg

DRUGS (1)
  1. SIMVASTATIN, 10 MG, AUROBINDO PHARM [Suspect]
     Indication: BLOOD CHOLESTEROL INCREASED
     Route: 048
     Dates: start: 20130129, end: 20130207

REACTIONS (2)
  - Myalgia [None]
  - Asthenia [None]
